FAERS Safety Report 5897462-X (Version None)
Quarter: 2008Q3

REPORT INFORMATION
  Report Type: 
  Country: None (occurrence: None)
  Receive Date: 20080915
  Receipt Date: 20071128
  Transmission Date: 20090109
  Serious: Yes (Other)
  Sender: FDA-Public Use
  Company Number: US-WYE-H01518707

PATIENT
  Age: 74 Year
  Sex: Female

DRUGS (2)
  1. PHOSPHOLINE IODIDE [Suspect]
     Indication: GLAUCOMA
     Dosage: 1 DROP IN RIGHT EYE TWICE DAILY, INTRAOCULAR
     Route: 031
     Dates: end: 20071101
  2. ZOCOR [Concomitant]

REACTIONS (3)
  - EYE DISCHARGE [None]
  - EYE PRURITUS [None]
  - OCULAR HYPERAEMIA [None]
